FAERS Safety Report 10027160 (Version 1)
Quarter: 2014Q1

REPORT INFORMATION
  Report Type: Spontaneous
  Country: DE (occurrence: None)
  Receive Date: 20140318
  Receipt Date: 20140318
  Transmission Date: 20141002
  Serious: Yes (Hospitalization, Other)
  Sender: FDA-Public Use
  Company Number: AUR-APL-2014-02656

PATIENT
  Age: 67 Year
  Sex: Male
  Weight: 75 kg

DRUGS (2)
  1. RISPERIDONE (RISPERIDONE) [Suspect]
     Indication: SCHIZOPHRENIA, PARANOID TYPE
     Dosage: 2 MG (1MG, 2 IN  1 D), ORAL
     Route: 048
     Dates: start: 20131217, end: 20140204
  2. RISPERIDONE (RISPERIDONE) [Concomitant]

REACTIONS (2)
  - Neuroleptic malignant syndrome [None]
  - Respiratory failure [None]
